FAERS Safety Report 4488935-5 (Version None)
Quarter: 2004Q3

REPORT INFORMATION
  Report Type: 
  Country: None (occurrence: None)
  Receive Date: 20040921
  Receipt Date: 20040412
  Transmission Date: 20050211
  Serious: Yes (Hospitalization)
  Sender: FDA-Public Use
  Company Number: 163-20785-04040310

PATIENT
  Age: 40 Year
  Sex: Female
  Weight: 80.7403 kg

DRUGS (9)
  1. THALOMID [Suspect]
     Indication: GLIOBLASTOMA MULTIFORME
     Dosage: 200-500MG, DAILY, ORAL
     Route: 048
     Dates: start: 20040305, end: 20040407
  2. PROCARBAZINE (PROCARBAZINE) [Suspect]
     Indication: GLIOBLASTOMA MULTIFORME
     Dosage: 2400MG, OVER 5 DAYS
     Dates: start: 20040305, end: 20040309
  3. ISUPREL (ISOPRENALINE HYDROCHLORIDE) [Concomitant]
  4. DEXAMETHASONE [Concomitant]
  5. METFORMIN HCL [Concomitant]
  6. TEGRETOL (CABAMAZEPINE) [Concomitant]
  7. COUMADIN [Concomitant]
  8. FAMOTIDINE [Concomitant]
  9. HYDROCODONE (HYDROCODONE) [Concomitant]

REACTIONS (4)
  - DIZZINESS [None]
  - FUNGAL OESOPHAGITIS [None]
  - NAUSEA [None]
  - VOMITING [None]
